FAERS Safety Report 10224473 (Version 2)
Quarter: 2014Q2

REPORT INFORMATION
  Report Type: Report from Study
  Country: US (occurrence: US)
  Receive Date: 20140609
  Receipt Date: 20140609
  Transmission Date: 20141212
  Serious: Yes (Congenital Anomaly, Other)
  Sender: FDA-Public Use
  Company Number: US-PFIZER INC-2004066017

PATIENT
  Sex: Male
  Weight: 2.1 kg

DRUGS (2)
  1. VIRACEPT [Suspect]
     Indication: HIV TEST POSITIVE
     Dosage: 2500 MG, DAILY (COURSE 1)
     Route: 064
     Dates: start: 20040629
  2. COMBIVIR [Suspect]
     Indication: HIV TEST POSITIVE
     Dosage: 2 DF, DAILY (COURSE 1)
     Route: 064
     Dates: start: 20040629

REACTIONS (8)
  - Small for dates baby [Unknown]
  - Premature baby [Unknown]
  - Congenital anomaly [Unknown]
  - Short-bowel syndrome [Unknown]
  - Pelvic abscess [Unknown]
  - Volvulus [Unknown]
  - Intestinal atresia [Unknown]
  - Foetal exposure during pregnancy [Unknown]
